FAERS Safety Report 23860900 (Version 1)
Quarter: 2024Q2

REPORT INFORMATION
  Report Type: Spontaneous
  Country: US (occurrence: US)
  Receive Date: 20240516
  Receipt Date: 20240516
  Transmission Date: 20240716
  Serious: Yes (Hospitalization, Other)
  Sender: FDA-Public Use
  Company Number: US-HALEON-2172505

PATIENT
  Age: 73 Year
  Sex: Female
  Weight: 97.5 kg

DRUGS (24)
  1. ADVIL PM (DIPHENHYDRAMINE CITRATE\IBUPROFEN) [Suspect]
     Active Substance: DIPHENHYDRAMINE CITRATE\IBUPROFEN
     Indication: Sleep disorder
     Dosage: UNK
  2. OFEV [Suspect]
     Active Substance: NINTEDANIB
     Indication: Interstitial lung disease
     Dosage: 100 MG, Q12H (AFTER A MEAL)
     Route: 048
     Dates: start: 20230105, end: 2023
  3. OFEV [Suspect]
     Active Substance: NINTEDANIB
     Dosage: UNK (DOSE DECREASED)
     Route: 048
     Dates: start: 2023
  4. THALIDOMIDE [Suspect]
     Active Substance: THALIDOMIDE
     Indication: Product used for unknown indication
     Dosage: UNK
     Dates: start: 20230224
  5. PREDNISONE [Concomitant]
     Active Substance: PREDNISONE
     Indication: Product used for unknown indication
  6. Triamcinolone acetonide (Triamcinolone acetonide) [Concomitant]
     Indication: Product used for unknown indication
  7. BENZONATATE [Concomitant]
     Active Substance: BENZONATATE
     Indication: Product used for unknown indication
  8. NAPROXEN [Concomitant]
     Active Substance: NAPROXEN
     Indication: Product used for unknown indication
  9. VITAMIN C [Concomitant]
     Active Substance: ASCORBIC ACID
     Indication: Product used for unknown indication
  10. Albuterol sulfate hfa (Salbutamol sulfate) [Concomitant]
     Indication: Product used for unknown indication
  11. Flovent hfa (Fluticasone propionate) Aerosol [Concomitant]
     Indication: Product used for unknown indication
  12. Preservision areds (Ascorbic acid, Betacarotene, Cupric oxide, Toco... [Concomitant]
     Indication: Product used for unknown indication
  13. MYCOPHENOLATE MOFETIL [Concomitant]
     Active Substance: MYCOPHENOLATE MOFETIL
     Indication: Product used for unknown indication
  14. Glucosamine complex (Chondroitin sulfate, Glucosamine) [Concomitant]
     Indication: Product used for unknown indication
  15. VITAMIN B12 [Concomitant]
     Active Substance: CYANOCOBALAMIN
     Indication: Product used for unknown indication
  16. Calcium with vitamin D3 (Calcium carbonate, Colecalciferol) [Concomitant]
     Indication: Product used for unknown indication
  17. OXYGEN [Concomitant]
     Active Substance: OXYGEN
     Indication: Product used for unknown indication
  18. TYVASO DPI [Suspect]
     Active Substance: TREPROSTINIL
     Indication: Pulmonary arterial hypertension
     Route: 055
     Dates: start: 2023
  19. TYVASO DPI [Suspect]
     Active Substance: TREPROSTINIL
     Route: 055
     Dates: start: 2023, end: 2023
  20. TYVASO DPI [Suspect]
     Active Substance: TREPROSTINIL
     Indication: Pulmonary arterial hypertension
     Dosage: UNK
     Route: 055
  21. SULFAMETHOXAZOLE\TRIMETHOPRIM [Concomitant]
     Active Substance: SULFAMETHOXAZOLE\TRIMETHOPRIM
     Indication: Product used for unknown indication
  22. Biotin (Biotin) [Concomitant]
     Indication: Product used for unknown indication
  23. Methenamine mandelate (Methenamine mandelate) [Concomitant]
     Indication: Product used for unknown indication
  24. ZYRTEC [Concomitant]
     Active Substance: CETIRIZINE HYDROCHLORIDE
     Indication: Product used for unknown indication

REACTIONS (22)
  - Dyspnoea exertional [Unknown]
  - Cardiac discomfort [Recovering/Resolving]
  - Therapy non-responder [Unknown]
  - Urinary tract infection [Recovered/Resolved]
  - Constipation [Recovering/Resolving]
  - Depression [Not Recovered/Not Resolved]
  - Fatigue [Not Recovered/Not Resolved]
  - Diarrhoea [Recovering/Resolving]
  - Tremor [Unknown]
  - Head titubation [Unknown]
  - Sleep disorder [Not Recovered/Not Resolved]
  - Frustration tolerance decreased [Unknown]
  - Asthenia [Not Recovered/Not Resolved]
  - Dyspnoea [Unknown]
  - Lung disorder [Unknown]
  - Pain [Not Recovered/Not Resolved]
  - Decreased appetite [Not Recovered/Not Resolved]
  - Therapy partial responder [Unknown]
  - Inappropriate schedule of product administration [Unknown]
  - Product dose omission in error [Unknown]
  - Macular degeneration [Recovering/Resolving]
  - Productive cough [Not Recovered/Not Resolved]

NARRATIVE: CASE EVENT DATE: 20230101
